FAERS Safety Report 4887559-5 (Version None)
Quarter: 2006Q1

REPORT INFORMATION
  Report Type: 
  Country: None (occurrence: None)
  Receive Date: 20060118
  Receipt Date: 20060112
  Transmission Date: 20060701
  Serious: Yes (Death)
  Sender: FDA-Public Use
  Company Number: FR-2005-017790

PATIENT
  Age: 82 Year
  Sex: Male

DRUGS (11)
  1. SOTALOL HCL [Suspect]
     Dosage: 1X/DAY
     Dates: end: 20050204
  2. DIGOXIN [Suspect]
     Indication: CARDIAC FAILURE
     Dosage: 0.5 MG, 1X/DAY
  3. ARICEPT [Suspect]
     Indication: DEMENTIA ALZHEIMER'S TYPE
     Dosage: 1X/DAY
  4. LASILIX [Concomitant]
  5. APROVEL (IRBESARTAN) [Concomitant]
  6. FRAXIPARINE                /SCH/(NADROPARIN CALCIUM) [Concomitant]
  7. NOCTRAN 10 (ACEPROMETAZINE, CLORAZEPATE DIPOTASSIUM, ACEPROMAZINE) [Concomitant]
  8. ZYLORIC ^FAES^ [Concomitant]
  9. FONZYLANE (BUFLOMEDIL HYDROCHLORIDE) [Concomitant]
  10. TARDYFERON                        /SCH/ (FERROUS SULFATE, IRON) [Concomitant]
  11. DOPAMINE HCL [Concomitant]

REACTIONS (3)
  - BRADYCARDIA [None]
  - HYPOTENSION [None]
  - SUDDEN DEATH [None]
